FAERS Safety Report 4324595-1 (Version None)
Quarter: 2004Q1

REPORT INFORMATION
  Report Type: 
  Country: None (occurrence: None)
  Receive Date: 20040323
  Receipt Date: 20040115
  Transmission Date: 20041129
  Serious: Yes (Death)
  Sender: FDA-Public Use
  Company Number: 2004-BP-016565RP

PATIENT
  Age: 70 Year
  Sex: Female

DRUGS (2)
  1. AGGRENOX [Suspect]
     Indication: CEREBROVASCULAR ACCIDENT
     Dosage: NR (SEE TEXT, 1 CAP BID (STRENGTH: 200/25MG)) PO
     Route: 048
     Dates: start: 20031020
  2. /CFR/) (KAR) (ACETYLSALICYLIC [Suspect]

REACTIONS (1)
  - PNEUMONIA ASPIRATION [None]
